FAERS Safety Report 8391648-0 (Version None)
Quarter: 2012Q2

REPORT INFORMATION
  Report Type: 
  Country: None (occurrence: None)
  Receive Date: 20120529
  Receipt Date: 20120521
  Transmission Date: 20120825
  Serious: Yes (Hospitalization)
  Sender: FDA-Public Use
  Company Number: US-BAYER-2012-051633

PATIENT
  Age: 22 Year
  Sex: Female
  Weight: 65.76 kg

DRUGS (9)
  1. CIPROFLOXACIN HCL [Concomitant]
  2. FLAGYL [Concomitant]
  3. HYDROXYCHLOROQUINE SULFATE [Concomitant]
     Dosage: 200 MG,MG/2 TABLETS DAILY, UNK
     Route: 048
  4. CEPHALEXIN [Concomitant]
     Dosage: 500 MG, UNK
  5. BEYAZ [Suspect]
     Dosage: UNK
     Dates: start: 20110824
  6. TRAMADOL HCL [Concomitant]
     Dosage: 50 MG, 1 TABLET Q (EVERY) 6 HOURS PRN
     Route: 048
  7. CYCLOBENAZPRINE [Concomitant]
     Dosage: 10 MG, TID
     Route: 048
  8. PREDNISONE TAB [Concomitant]
     Dosage: 20 MG, UNK
  9. ROXICODONE [Concomitant]

REACTIONS (1)
  - PULMONARY EMBOLISM [None]
